FAERS Safety Report 8609265-3 (Version None)
Quarter: 2012Q3

REPORT INFORMATION
  Report Type: 
  Country: None (occurrence: None)
  Receive Date: 20120821
  Receipt Date: 20120809
  Transmission Date: 20120928
  Serious: No
  Sender: FDA-Public Use
  Company Number: US-ASTRAZENECA-2012SE56274

PATIENT
  Age: 39 Year
  Sex: Female
  Weight: 113.4 kg

DRUGS (8)
  1. PERCOCET [Concomitant]
     Indication: SCIATICA
  2. LYRICA [Concomitant]
     Indication: NEURALGIA
  3. NEXIUM [Suspect]
     Indication: GASTROOESOPHAGEAL REFLUX DISEASE
     Route: 048
     Dates: start: 20000101, end: 20120701
  4. PERCOCET [Concomitant]
     Indication: BACK PAIN
  5. METFORMIN [Concomitant]
     Indication: GLUCOSE TOLERANCE IMPAIRED
  6. NEXIUM [Suspect]
     Route: 048
  7. ZOLOFT [Concomitant]
     Indication: ANXIETY
  8. MUSCLE RELAXER [Concomitant]

REACTIONS (11)
  - ARTHRITIS [None]
  - INTENTIONAL DRUG MISUSE [None]
  - DYSPEPSIA [None]
  - NERVE COMPRESSION [None]
  - ABDOMINAL DISCOMFORT [None]
  - ANXIETY [None]
  - GLUCOSE TOLERANCE IMPAIRED [None]
  - DRUG DOSE OMISSION [None]
  - SCIATICA [None]
  - ADVERSE EVENT [None]
  - MATERNAL EXPOSURE DURING PREGNANCY [None]
